FAERS Safety Report 4880739-4 (Version None)
Quarter: 2006Q1

REPORT INFORMATION
  Report Type: 
  Country: None (occurrence: None)
  Receive Date: 20060113
  Receipt Date: 20050824
  Transmission Date: 20060701
  Serious: Yes (Hospitalization, Disabling)
  Sender: FDA-Public Use
  Company Number: US-MERCK-0508USA04338

PATIENT
  Age: 54 Year
  Sex: Male
  Weight: 167 kg

DRUGS (5)
  1. VIOXX [Suspect]
     Indication: ARTHRALGIA
     Route: 048
     Dates: start: 20010424, end: 20040930
  2. VIOXX [Suspect]
     Indication: ARTHRITIS
     Route: 048
     Dates: start: 20010424, end: 20040930
  3. IBUPROFEN [Concomitant]
     Route: 065
  4. ATENOLOL [Concomitant]
     Indication: HYPERTENSION
     Route: 065
  5. LOTENSIN [Concomitant]
     Indication: HYPERTENSION
     Route: 065

REACTIONS (13)
  - ANAEMIA [None]
  - ARTERIOSCLEROSIS CORONARY ARTERY [None]
  - CORONARY ARTERY STENOSIS [None]
  - GASTROINTESTINAL HAEMORRHAGE [None]
  - HERNIA [None]
  - HERNIA REPAIR [None]
  - HYPERLIPIDAEMIA [None]
  - MYOCARDIAL INFARCTION [None]
  - OBESITY [None]
  - SLEEP APNOEA SYNDROME [None]
  - STENT OCCLUSION [None]
  - ULCER [None]
  - UPPER RESPIRATORY TRACT INFECTION [None]
